FAERS Safety Report 25508207 (Version 2)
Quarter: 2025Q3

REPORT INFORMATION
  Report Type: Spontaneous
  Country: US (occurrence: US)
  Receive Date: 20250703
  Receipt Date: 20250807
  Transmission Date: 20251021
  Serious: No
  Sender: JOHNSON AND JOHNSON
  Company Number: US-JNJFOC-20250635745

PATIENT
  Age: 84 Year

DRUGS (1)
  1. OPSUMIT [Suspect]
     Active Substance: MACITENTAN
     Indication: Pulmonary hypertension
     Route: 048
     Dates: start: 202506

REACTIONS (3)
  - Product storage error [Unknown]
  - Rehabilitation therapy [Unknown]
  - Product container seal issue [Unknown]

NARRATIVE: CASE EVENT DATE: 20250623
